FAERS Safety Report 21989117 (Version 2)
Quarter: 2023Q2

REPORT INFORMATION
  Report Type: Report from Study
  Country: US (occurrence: US)
  Receive Date: 20230214
  Receipt Date: 20230506
  Transmission Date: 20230721
  Serious: No
  Sender: FDA-Public Use
  Company Number: US-002147023-NVSC2023US028875

PATIENT
  Sex: Female

DRUGS (1)
  1. KESIMPTA [Suspect]
     Active Substance: OFATUMUMAB
     Indication: Product used for unknown indication
     Dosage: UNK
     Route: 065

REACTIONS (8)
  - Injection related reaction [Unknown]
  - Fatigue [Unknown]
  - Chills [Unknown]
  - Confusional state [Unknown]
  - Headache [Unknown]
  - Myalgia [Unknown]
  - Taste disorder [Unknown]
  - Pain [Unknown]
